FAERS Safety Report 4809250-3 (Version None)
Quarter: 2005Q4

REPORT INFORMATION
  Report Type: 
  Country: None (occurrence: None)
  Receive Date: 20051021
  Receipt Date: 20030917
  Transmission Date: 20060501
  Serious: Yes (Other)
  Sender: FDA-Public Use
  Company Number: GBS030913729

PATIENT
  Age: 84 Year
  Sex: Female

DRUGS (6)
  1. OLANZAPINE [Suspect]
     Indication: DELUSION
     Dosage: 7.5 MG/1 DAY
     Dates: start: 20010101, end: 20030916
  2. OLANZAPINE [Suspect]
     Indication: SCHIZOPHRENIA
     Dosage: 7.5 MG/1 DAY
     Dates: start: 20010101, end: 20030916
  3. VENLAFAXINE [Concomitant]
  4. LORMETAZEPAM [Concomitant]
  5. ANAESTHETICS [Concomitant]
  6. ELECTROCONVULSIVE THERAPY [Concomitant]

REACTIONS (5)
  - GENERAL PHYSICAL HEALTH DETERIORATION [None]
  - HAEMATOCRIT DECREASED [None]
  - HAEMOGLOBIN DECREASED [None]
  - LEUKOPENIA [None]
  - NEUTROPENIA [None]
